FAERS Safety Report 8311849-7 (Version None)
Quarter: 2012Q2

REPORT INFORMATION
  Report Type: 
  Country: None (occurrence: None)
  Receive Date: 20120425
  Receipt Date: 20120413
  Transmission Date: 20120825
  Serious: Yes (Hospitalization)
  Sender: FDA-Public Use
  Company Number: US-ACTELION-A-NJ2012-62714

PATIENT

DRUGS (5)
  1. DIGOXIN [Concomitant]
  2. REVATIO [Concomitant]
  3. ASPIRIN [Concomitant]
  4. TRACLEER [Suspect]
     Indication: PULMONARY ARTERIAL HYPERTENSION
     Dosage: UNK
     Route: 048
     Dates: start: 20120215, end: 20120412
  5. LASIX [Concomitant]

REACTIONS (2)
  - CEREBRAL HAEMORRHAGE [None]
  - DISORIENTATION [None]
